FAERS Safety Report 7007556-3 (Version None)
Quarter: 2010Q3

REPORT INFORMATION
  Report Type: 
  Country: None (occurrence: None)
  Receive Date: 20100922
  Receipt Date: 20100917
  Transmission Date: 20110219
  Serious: Yes (Other)
  Sender: FDA-Public Use
  Company Number: IN-PFIZER INC-2010097761

PATIENT
  Sex: Male

DRUGS (1)
  1. MEDROL [Suspect]
     Indication: HYPOGLYCAEMIA
     Dosage: 16 MG, 2X/DAY
     Route: 048

REACTIONS (1)
  - BLOOD GLUCOSE INCREASED [None]
